FAERS Safety Report 25638705 (Version 1)
Quarter: 2025Q3

REPORT INFORMATION
  Report Type: Spontaneous
  Country: US (occurrence: US)
  Receive Date: 20250804
  Receipt Date: 20250804
  Transmission Date: 20251020
  Serious: No
  Sender: ABBVIE
  Company Number: US-ABBVIE-6391804

PATIENT
  Age: 64 Year
  Sex: Female

DRUGS (1)
  1. ARMOUR THYROID [Suspect]
     Active Substance: THYROID, PORCINE
     Indication: Hypothyroidism
     Dosage: 30 MG PLUS 15 MG TO TAKE AT THE SAME TIME.
     Route: 048
     Dates: start: 2009, end: 20250728

REACTIONS (14)
  - Malaise [Not Recovered/Not Resolved]
  - Brain fog [Not Recovered/Not Resolved]
  - Wheezing [Not Recovered/Not Resolved]
  - Head discomfort [Recovered/Resolved]
  - Product quality issue [Not Recovered/Not Resolved]
  - Swelling face [Not Recovered/Not Resolved]
  - Amblyopia [Not Recovered/Not Resolved]
  - Dysphonia [Not Recovered/Not Resolved]
  - Nausea [Not Recovered/Not Resolved]
  - Pain [Not Recovered/Not Resolved]
  - Dyspnoea [Not Recovered/Not Resolved]
  - Product packaging quantity issue [Not Recovered/Not Resolved]
  - Feeling abnormal [Unknown]
  - Nervous system disorder [Unknown]

NARRATIVE: CASE EVENT DATE: 20250101
